FAERS Safety Report 5202422-8 (Version None)
Quarter: 2007Q1

REPORT INFORMATION
  Report Type: 
  Country: None (occurrence: None)
  Receive Date: 20070109
  Receipt Date: 20070105
  Transmission Date: 20070707
  Serious: Yes (Other)
  Sender: FDA-Public Use
  Company Number: 2007UW00263

PATIENT
  Age: 77 Year
  Sex: Female

DRUGS (3)
  1. METOPROLOL SUCCINATE [Suspect]
     Indication: HYPERTENSION
     Route: 048
     Dates: end: 20060701
  2. COREG TABLET [Suspect]
     Indication: HYPERTENSION
     Route: 048
     Dates: start: 20060701
  3. LISINOPRIL [Concomitant]

REACTIONS (2)
  - ALOPECIA [None]
  - HEPATIC NEOPLASM [None]
